FAERS Safety Report 22003336 (Version 1)
Quarter: 2023Q1

REPORT INFORMATION
  Report Type: Other
  Country: DE (occurrence: DE)
  Receive Date: 20230217
  Receipt Date: 20230217
  Transmission Date: 20230418
  Serious: Yes (Congenital Anomaly)
  Sender: FDA-Public Use
  Company Number: DE-MACLEODS PHARMACEUTICALS US LTD-MAC2023039790

PATIENT

DRUGS (4)
  1. CANDESARTAN [Suspect]
     Active Substance: CANDESARTAN
     Indication: Product used for unknown indication
     Dosage: 16 MILLIGRAM, QD (0. - 7.4. GESTATIONAL WEEK) ( EXPOSURE AT 1 {TRIMESTER})
     Route: 064
     Dates: start: 20210423, end: 20210615
  2. ESCITALOPRAM [Suspect]
     Active Substance: ESCITALOPRAM OXALATE
     Indication: Product used for unknown indication
     Dosage: 20 MILLIGRAM, QD ([MG/D (BIS 5) ]/ NO INTAKE FROM GW 8 UNTIL 27. DRUG TREATMENT INDICATION: DEPRESSI
     Route: 064
     Dates: start: 20210423, end: 20220208
  3. INDAPAMIDE [Suspect]
     Active Substance: INDAPAMIDE
     Indication: Product used for unknown indication
     Dosage: 1.5 MILLIGRAM, QD,1 {TRIMESTER}, 0. - 7.4. GESTATIONAL WEEK
     Route: 064
     Dates: start: 20210423, end: 20210615
  4. ASPIRIN [Suspect]
     Active Substance: ASPIRIN
     Indication: Product used for unknown indication
     Dosage: 150 MILLIGRAM, QD (150 [MG/D (2X75) ]/ PROPHYLAXIS PRE-ECLAMPSIA), EXPOSURE AT 1 {TRIMESTER}) AT 9.
     Route: 064

REACTIONS (2)
  - Ventricular septal defect [Unknown]
  - Foetal exposure during pregnancy [Unknown]
